FAERS Safety Report 4914053-5 (Version None)
Quarter: 2006Q1

REPORT INFORMATION
  Report Type: 
  Country: None (occurrence: None)
  Receive Date: 20060203
  Receipt Date: 20060131
  Transmission Date: 20060701
  Serious: Yes (Life-Threatening, Hospitalization)
  Sender: FDA-Public Use
  Company Number: 200509525

PATIENT
  Sex: Female

DRUGS (2)
  1. HAEMATE P (FACTOR VIII (ANTIHAEMOPHILIC FACTOR)) (ZLB BEHRING) [Suspect]
     Indication: PROPHYLAXIS
  2. HAEMATE P (FACTOR VIII (ANTIHAEMOPHILIC FACTOR)) (ZLB BEHRING) [Suspect]
     Indication: VON WILLEBRAND'S DISEASE

REACTIONS (3)
  - PLATELET DISORDER [None]
  - POST PROCEDURAL HAEMORRHAGE [None]
  - THROMBOCYTOPENIA [None]
